FAERS Safety Report 4958036-8 (Version None)
Quarter: 2006Q1

REPORT INFORMATION
  Report Type: 
  Country: None (occurrence: None)
  Receive Date: 20060330
  Receipt Date: 20050113
  Transmission Date: 20060701
  Serious: Yes (Death, Hospitalization, Disabling, Other)
  Sender: FDA-Public Use
  Company Number: US-MERCK-0501USA02375

PATIENT
  Age: 62 Year
  Sex: Female
  Weight: 86 kg

DRUGS (7)
  1. VIOXX [Suspect]
     Indication: ARTHRITIS
     Route: 048
     Dates: start: 20010101, end: 20031001
  2. NEXIUM [Concomitant]
     Route: 065
  3. DYNACIRC [Concomitant]
     Route: 065
  4. PREMARIN [Concomitant]
     Route: 065
  5. EFFEXOR [Concomitant]
     Route: 065
  6. CALCIUM (UNSPECIFIED) AND VITAMIN D (UNSPECIFIED) [Concomitant]
     Route: 065
  7. TYLENOL (CAPLET) [Concomitant]
     Route: 065

REACTIONS (10)
  - CARDIAC ARREST [None]
  - CARDIAC FAILURE [None]
  - DEATH [None]
  - HYPERTENSION [None]
  - LUNG NEOPLASM [None]
  - LUNG NEOPLASM MALIGNANT [None]
  - MYOCARDIAL INFARCTION [None]
  - NASOPHARYNGITIS [None]
  - RESPIRATORY DISTRESS [None]
  - SPINAL FRACTURE [None]
